FAERS Safety Report 25954867 (Version 2)
Quarter: 2025Q4

REPORT INFORMATION
  Report Type: Spontaneous
  Country: EU (occurrence: EU)
  Receive Date: 20251024
  Receipt Date: 20251104
  Transmission Date: 20260118
  Serious: Yes (Hospitalization, Other)
  Sender: EMMAUS MEDICAL
  Company Number: EU-EMM-EMM202510-000172

PATIENT
  Age: 77 Year
  Sex: Male

DRUGS (6)
  1. ENDARI [Suspect]
     Active Substance: GLUTAMINE
     Indication: Supplementation therapy
     Dosage: 18 G
     Route: 065
  2. ENDARI [Suspect]
     Active Substance: GLUTAMINE
     Indication: Weight decreased
  3. METFORMIN [Concomitant]
     Active Substance: METFORMIN HYDROCHLORIDE
     Indication: Type 2 diabetes mellitus
     Dosage: 1000 MG
     Route: 065
  4. GLICLAZIDE [Concomitant]
     Active Substance: GLICLAZIDE
     Indication: Type 2 diabetes mellitus
     Dosage: 80 MG
     Route: 065
  5. LEVETIRACETAM [Concomitant]
     Active Substance: LEVETIRACETAM
     Indication: Epilepsy
     Dosage: 500 MG
     Route: 065
  6. APIXABAN [Concomitant]
     Active Substance: APIXABAN
     Indication: Atrial flutter
     Dosage: UNKNOWN
     Route: 065

REACTIONS (1)
  - Acute kidney injury [Recovering/Resolving]
